FAERS Safety Report 4578919-0 (Version None)
Quarter: 2005Q1

REPORT INFORMATION
  Report Type: 
  Country: None (occurrence: None)
  Receive Date: 20050121
  Receipt Date: 20040609
  Transmission Date: 20050727
  Serious: Yes (Other)
  Sender: FDA-Public Use
  Company Number: PHBS2004US07572

PATIENT
  Sex: Male

DRUGS (4)
  1. LIORESAL [Suspect]
     Indication: MUSCLE SPASTICITY
     Dosage: INTRATHECAL
     Route: 037
  2. TEGRETOL [Concomitant]
  3. VALIUM [Concomitant]
  4. DEMEROL [Concomitant]

REACTIONS (8)
  - CONFUSIONAL STATE [None]
  - CONVULSION [None]
  - HEADACHE [None]
  - HYPERTONIA [None]
  - HYPOTENSION [None]
  - INFECTION [None]
  - PRURITUS [None]
  - URINARY TRACT INFECTION [None]
